FAERS Safety Report 9113886 (Version 1)
Quarter: 2013Q1

REPORT INFORMATION
  Report Type: Spontaneous
  Country: GR (occurrence: GR)
  Receive Date: 20130208
  Receipt Date: 20130208
  Transmission Date: 20140127
  Serious: Yes (Hospitalization)
  Sender: FDA-Public Use
  Company Number: GR-PERRIGO-13GR001026

PATIENT
  Age: 77 Year
  Sex: Male

DRUGS (1)
  1. TESTOSTERONE ENANTHATE [Suspect]
     Indication: CRYPTORCHISM
     Dosage: 250 MG, EVERY 3 WEEKS
     Route: 051

REACTIONS (4)
  - Dizziness [Unknown]
  - Polycythaemia [Recovered/Resolved]
  - Headache [Recovered/Resolved]
  - Drug level increased [None]
